FAERS Safety Report 6442215-7 (Version None)
Quarter: 2009Q4

REPORT INFORMATION
  Report Type: 
  Country: None (occurrence: None)
  Receive Date: 20091116
  Receipt Date: 20091105
  Transmission Date: 20100525
  Serious: Yes (Death, Other)
  Sender: FDA-Public Use
  Company Number: GB-JNJFOC-20090307427

PATIENT
  Sex: Female
  Weight: 89 kg

DRUGS (12)
  1. REMICADE [Suspect]
     Indication: RHEUMATOID ARTHRITIS
     Route: 042
  2. METHOTREXATE [Concomitant]
  3. PREDNISOLONE [Concomitant]
  4. CALCICHEW [Concomitant]
  5. CELECOXIB [Concomitant]
  6. PROPRANOLOL [Concomitant]
  7. RANITIDINE [Concomitant]
  8. RISEDRONATE SODIUM [Concomitant]
  9. SENNA [Concomitant]
  10. ZOPICLONE [Concomitant]
  11. TRAMADOL HCL [Concomitant]
  12. PARACETAMOL [Concomitant]

REACTIONS (2)
  - NON-SMALL CELL LUNG CANCER [None]
  - PULMONARY FIBROSIS [None]
